FAERS Safety Report 6767713-8 (Version None)
Quarter: 2010Q2

REPORT INFORMATION
  Report Type: 
  Country: None (occurrence: None)
  Receive Date: 20100611
  Receipt Date: 20100527
  Transmission Date: 20101027
  Serious: Yes (Death, Other)
  Sender: FDA-Public Use
  Company Number: 8013990

PATIENT
  Sex: Male
  Weight: 75 kg

DRUGS (11)
  1. KEPPRA [Suspect]
     Indication: EPILEPSY
     Dosage: 250 MG BID ORAL
     Route: 048
     Dates: start: 20050201
  2. TEGRETOL [Concomitant]
  3. ISOSORBIDMONITRAT [Concomitant]
  4. METHOHEXAL SUCC [Concomitant]
  5. HYDROCHLOROTHIAZIDE [Concomitant]
  6. VALRON N/00628301/ [Concomitant]
  7. DICLOFENIAC [Concomitant]
  8. OMEPRAZOLE [Concomitant]
  9. ACTONEL [Concomitant]
  10. CALCIVIT D [Concomitant]
  11. CALCIUM CARBONATE [Concomitant]

REACTIONS (10)
  - ANAEMIA [None]
  - ANTICONVULSANT DRUG LEVEL INCREASED [None]
  - CONSTIPATION [None]
  - DIARRHOEA [None]
  - DRUG EFFECT DECREASED [None]
  - DYSPEPSIA [None]
  - DYSPNOEA EXERTIONAL [None]
  - SOMNOLENCE [None]
  - SUDDEN DEATH [None]
  - VERTIGO [None]
